FAERS Safety Report 11391356 (Version 12)
Quarter: 2017Q2

REPORT INFORMATION
  Report Type: Report from Study
  Country: CA (occurrence: CA)
  Receive Date: 20150818
  Receipt Date: 20170605
  Transmission Date: 20170829
  Serious: Yes (Other)
  Sender: FDA-Public Use
  Company Number: CA-ROCHE-1611323

PATIENT
  Age: 86 Year
  Sex: Male

DRUGS (22)
  1. ESBRIET [Suspect]
     Active Substance: PIRFENIDONE
     Route: 048
     Dates: start: 20150604
  2. ESBRIET [Suspect]
     Active Substance: PIRFENIDONE
     Route: 048
  3. ESBRIET [Suspect]
     Active Substance: PIRFENIDONE
     Route: 048
     Dates: start: 20150727
  4. ESBRIET [Suspect]
     Active Substance: PIRFENIDONE
     Dosage: 801MG-801MG-534MG
     Route: 048
     Dates: start: 20150810
  5. ZOCOR [Concomitant]
     Active Substance: SIMVASTATIN
  6. ESBRIET [Suspect]
     Active Substance: PIRFENIDONE
     Route: 048
     Dates: start: 20150528
  7. DIPHENHYDRAMINE HCL [Concomitant]
     Active Substance: DIPHENHYDRAMINE HYDROCHLORIDE
     Route: 048
     Dates: start: 20150925
  8. ACETAMINOPHEN. [Concomitant]
     Active Substance: ACETAMINOPHEN
     Route: 048
     Dates: start: 20150925
  9. METHYLPREDNISOLONE. [Concomitant]
     Active Substance: METHYLPREDNISOLONE
     Route: 042
     Dates: start: 20150925
  10. ESBRIET [Suspect]
     Active Substance: PIRFENIDONE
     Indication: IDIOPATHIC PULMONARY FIBROSIS
     Route: 048
     Dates: start: 20150521
  11. RITUXAN [Suspect]
     Active Substance: RITUXIMAB
     Indication: IMMUNE THROMBOCYTOPENIC PURPURA
     Dosage: LAST INFUSION WAS ON 16/OCT/2015.
     Route: 042
     Dates: start: 20150925, end: 20151016
  12. ACETYLSALICYLIC ACID [Concomitant]
     Active Substance: ASPIRIN
  13. OXYGEN. [Concomitant]
     Active Substance: OXYGEN
     Route: 065
  14. ESBRIET [Suspect]
     Active Substance: PIRFENIDONE
     Route: 048
     Dates: start: 20150706, end: 20150711
  15. ESBRIET [Suspect]
     Active Substance: PIRFENIDONE
     Route: 048
     Dates: start: 20151201, end: 2017
  16. ESBRIET [Suspect]
     Active Substance: PIRFENIDONE
     Dosage: 534MG-801MG-534MG
     Route: 048
     Dates: start: 20150803
  17. ESBRIET [Suspect]
     Active Substance: PIRFENIDONE
     Route: 048
     Dates: start: 20150817
  18. ESBRIET [Suspect]
     Active Substance: PIRFENIDONE
     Route: 048
     Dates: start: 20150619
  19. ESBRIET [Suspect]
     Active Substance: PIRFENIDONE
     Route: 048
     Dates: start: 20150720
  20. ESBRIET [Suspect]
     Active Substance: PIRFENIDONE
     Dosage: 534MG-801MG-534MG
     Route: 048
     Dates: start: 20151105
  21. NORVASC [Concomitant]
     Active Substance: AMLODIPINE BESYLATE
  22. BISOPROLOL [Concomitant]
     Active Substance: BISOPROLOL

REACTIONS (14)
  - Nausea [Recovered/Resolved]
  - Drug ineffective [Unknown]
  - Chest pain [Not Recovered/Not Resolved]
  - Listless [Unknown]
  - Pulmonary function test decreased [Unknown]
  - Pulmonary function test abnormal [Unknown]
  - Therapy non-responder [Unknown]
  - Oxygen saturation decreased [Unknown]
  - Fatigue [Unknown]
  - Platelet count decreased [Unknown]
  - Blood pressure increased [Unknown]
  - Peripheral swelling [Not Recovered/Not Resolved]
  - Blood pressure fluctuation [Unknown]
  - Off label use [Unknown]

NARRATIVE: CASE EVENT DATE: 20150925
